FAERS Safety Report 21617244 (Version 2)
Quarter: 2022Q4

REPORT INFORMATION
  Report Type: Report from Study
  Country: US (occurrence: US)
  Receive Date: 20221118
  Receipt Date: 20221125
  Transmission Date: 20230113
  Serious: Yes (Other)
  Sender: FDA-Public Use
  Company Number: US-ABBVIE-4204481

PATIENT
  Sex: Female

DRUGS (2)
  1. DUOPA [Suspect]
     Active Substance: CARBIDOPA\LEVODOPA
     Indication: Parkinson^s disease
     Route: 050
     Dates: start: 20210727
  2. DUOPA [Suspect]
     Active Substance: CARBIDOPA\LEVODOPA

REACTIONS (8)
  - Pulmonary fibrosis [Unknown]
  - Weight decreased [Unknown]
  - Myocardial infarction [Unknown]
  - Memory impairment [Unknown]
  - Oesophageal mass [Unknown]
  - Oxygen therapy [Unknown]
  - Lung neoplasm malignant [Unknown]
  - Vomiting [Unknown]

NARRATIVE: CASE EVENT DATE: 20220101
